FAERS Safety Report 9013524 (Version 1)
Quarter: 2013Q1

REPORT INFORMATION
  Report Type: Spontaneous
  Country: US (occurrence: US)
  Receive Date: 20130115
  Receipt Date: 20130115
  Transmission Date: 20140127
  Serious: Yes (Other)
  Sender: FDA-Public Use
  Company Number: US-BAYER-2013-003364

PATIENT
  Age: 30 Year
  Sex: Female
  Weight: 78.01 kg

DRUGS (3)
  1. OCELLA [Suspect]
     Dosage: UNK
     Dates: start: 20110120, end: 20110818
  2. IBUPROFEN [Concomitant]
  3. TRAMADOL [Concomitant]

REACTIONS (1)
  - Deep vein thrombosis [Recovered/Resolved]
